FAERS Safety Report 12070663 (Version 4)
Quarter: 2016Q1

REPORT INFORMATION
  Report Type: Spontaneous
  Country: AT (occurrence: AT)
  Receive Date: 20160211
  Receipt Date: 20160307
  Transmission Date: 20160526
  Serious: Yes (Hospitalization, Other)
  Sender: FDA-Public Use
  Company Number: AT-B.I. PHARMACEUTICALS,INC./RIDGEFIELD-2016-BI-08002YA

PATIENT
  Age: 72 Year
  Sex: Male

DRUGS (1)
  1. TAMSULOSINA [Suspect]
     Active Substance: TAMSULOSIN HYDROCHLORIDE
     Indication: MICTURITION DISORDER
     Route: 065

REACTIONS (12)
  - Renal failure [Unknown]
  - Left ventricular hypertrophy [Unknown]
  - Hemianopia [Not Recovered/Not Resolved]
  - Cardiac failure chronic [Unknown]
  - Pulmonary congestion [Unknown]
  - Diabetes mellitus [Unknown]
  - Coronary artery disease [Unknown]
  - Polyneuropathy [Recovered/Resolved]
  - Pain in extremity [Unknown]
  - Cognitive disorder [Recovered/Resolved]
  - Peripheral ischaemia [Unknown]
  - Ischaemic stroke [Unknown]
